FAERS Safety Report 18104125 (Version 1)
Quarter: 2020Q3

REPORT INFORMATION
  Report Type: Spontaneous
  Country: US (occurrence: US)
  Receive Date: 20200801
  Receipt Date: 20200801
  Transmission Date: 20201103
  Serious: Yes (Life-Threatening)
  Sender: FDA-Public Use
  Company Number: None

PATIENT
  Age: 35 Year
  Sex: Female
  Weight: 71.55 kg

DRUGS (7)
  1. KETOROLAC [Concomitant]
     Active Substance: KETOROLAC TROMETHAMINE
  2. O.N.E. MULTIVITAMIN FISH OIL (DAVINCI OMEGA 3HPD) [Concomitant]
  3. L METHYLPHOLATE [Concomitant]
  4. CIPROFLOXACIN. [Suspect]
     Active Substance: CIPROFLOXACIN
     Indication: URINARY TRACT INFECTION
     Route: 048
     Dates: start: 20200725, end: 20200728
  5. 5 HTP [Concomitant]
  6. NORTRIPTYLINE [Concomitant]
     Active Substance: NORTRIPTYLINE
  7. ADVANCED ENZYME SYSTEM [Concomitant]

REACTIONS (7)
  - Self-injurious ideation [None]
  - Tremor [None]
  - Crying [None]
  - Anxiety [None]
  - Suicidal ideation [None]
  - Depression [None]
  - Irritability [None]

NARRATIVE: CASE EVENT DATE: 20200725
